FAERS Safety Report 8182750-7 (Version None)
Quarter: 2012Q1

REPORT INFORMATION
  Report Type: 
  Country: None (occurrence: None)
  Receive Date: 20120305
  Receipt Date: 20120224
  Transmission Date: 20120608
  Serious: Yes (Hospitalization, Other)
  Sender: FDA-Public Use
  Company Number: US-BAYER-2011-006186

PATIENT
  Age: 40 Year
  Sex: Female

DRUGS (12)
  1. YAZ [Suspect]
     Dosage: UNK
     Dates: start: 19960101, end: 20070101
  2. ADVAIR DISKUS 100/50 [Concomitant]
  3. YASMIN [Suspect]
     Dosage: UNK
     Dates: start: 20050101
  4. DROSPIRENONE AND ETHINYL ESTRADIOL [Suspect]
     Indication: ACNE
     Dosage: UNK
     Dates: start: 19950101, end: 20060101
  5. DROSPIRENONE AND ETHINYL ESTRADIOL [Suspect]
     Dosage: UNK
     Dates: start: 20050101
  6. DROSPIRENONE AND ETHINYL ESTRADIOL [Suspect]
     Dosage: UNK
     Dates: start: 19950101, end: 20050101
  7. ALBUTEROL [Concomitant]
  8. YASMIN [Suspect]
     Indication: ACNE
     Dosage: UNK
     Dates: start: 19950101, end: 20060101
  9. YASMIN [Suspect]
     Dosage: UNK
     Dates: start: 19950101, end: 20050101
  10. YAZ [Suspect]
     Indication: ACNE
     Dosage: UNK
     Dates: start: 19950101, end: 20060101
  11. SYNTHROID [Concomitant]
  12. LYRICA [Concomitant]
     Dosage: 75 MG, QD
     Route: 048
     Dates: start: 20070405

REACTIONS (9)
  - EMOTIONAL DISTRESS [None]
  - PAIN [None]
  - ANXIETY [None]
  - PSYCHOLOGICAL TRAUMA [None]
  - CARDIAC VALVE DISEASE [None]
  - AORTIC VALVE INCOMPETENCE [None]
  - INJURY [None]
  - PULMONARY EMBOLISM [None]
  - SYNCOPE [None]
